FAERS Safety Report 6241641-9 (Version None)
Quarter: 2009Q2

REPORT INFORMATION
  Report Type: 
  Country: None (occurrence: None)
  Receive Date: 20090623
  Receipt Date: 20050422
  Transmission Date: 20091009
  Serious: Yes (Death, Hospitalization)
  Sender: FDA-Public Use
  Company Number: CZ-ROCHE-402644

PATIENT
  Sex: Female
  Weight: 86 kg

DRUGS (35)
  1. MYCOPHENOLATE MOFETIL [Suspect]
     Route: 048
     Dates: start: 20040224
  2. MYCOPHENOLATE MOFETIL [Suspect]
     Route: 048
     Dates: start: 20040225
  3. MYCOPHENOLATE MOFETIL [Suspect]
     Route: 048
     Dates: start: 20040228, end: 20040714
  4. MYCOPHENOLATE MOFETIL [Suspect]
     Dosage: DRUG: MYCOPHENOLAT MOFETIL
     Route: 048
     Dates: start: 20040715, end: 20041202
  5. DACLIZUMAB [Suspect]
     Route: 042
     Dates: start: 20040225
  6. DACLIZUMAB [Suspect]
     Dosage: WEEK 2,4,6,8 VISIT
     Route: 042
     Dates: start: 20040309, end: 20040421
  7. CYCLOSPORINE [Suspect]
     Dosage: DRUG: CYKLOSPORIN
     Route: 050
     Dates: start: 20041209, end: 20041213
  8. TACROLIMUS [Suspect]
     Route: 048
     Dates: start: 20041202, end: 20041207
  9. SIROLIMUS [Suspect]
     Route: 048
     Dates: start: 20040224, end: 20041203
  10. METHYLPREDNISOLONE [Suspect]
     Route: 042
     Dates: start: 20040224, end: 20040227
  11. METHYLPREDNISOLONE [Suspect]
     Route: 042
     Dates: start: 20041205
  12. CYCLOSPORINE [Suspect]
     Dosage: DRUG: CYKLOSPORIN
     Route: 042
     Dates: start: 20041207, end: 20041208
  13. CYCLOSPORINE [Suspect]
     Route: 042
     Dates: start: 20041214, end: 20041225
  14. PREDNISONUM [Suspect]
     Route: 048
     Dates: start: 20040227
  15. GLUKOS [Concomitant]
     Dates: start: 20041202, end: 20041225
  16. AMILORIDI HYDROCHLORIDUM [Concomitant]
     Route: 048
     Dates: start: 20040825
  17. AMLODIPINI BESILAS [Concomitant]
     Route: 048
     Dates: start: 20040428
  18. CARVEDILOLUM [Concomitant]
     Route: 048
     Dates: start: 20040531
  19. CARVEDILOLUM [Concomitant]
     Route: 048
     Dates: start: 20040825, end: 20050221
  20. CEFOTAXIMUM [Concomitant]
     Route: 042
     Dates: start: 20040225, end: 20040227
  21. CIPROFLOXACIN [Concomitant]
     Dosage: DRUG: CIPROFLOXACILIN
     Route: 048
     Dates: start: 20040825
  22. CIPROFLOXACIN [Concomitant]
     Dosage: DRUG: CIPROFLOXACILIN
     Route: 042
     Dates: start: 20041206
  23. EPOETIN [Concomitant]
     Dosage: DOSE: 2000 KU, DRUG: EPOETINUM
     Route: 058
     Dates: start: 20010101
  24. FLUCONAZOLUM [Concomitant]
     Route: 042
     Dates: start: 20041210
  25. LOVASTATIN [Concomitant]
     Route: 048
     Dates: start: 20040305
  26. NOREPINEPHRINE BITARTRATE [Concomitant]
     Dosage: DRUG: NOREPINEPHRINI
     Route: 042
     Dates: start: 20040225, end: 20040226
  27. ORNIDAZOL [Concomitant]
     Dosage: DRUG: ORNIDAZOLUM
     Route: 042
     Dates: start: 20041208
  28. PERINDOPRIL ERBUMINE [Concomitant]
     Dosage: DRUG: PERINDOPRILUM ERBUMINUM
     Route: 048
     Dates: start: 20040419
  29. PIPERACILLIN [Concomitant]
     Route: 042
     Dates: start: 20041207
  30. PROPAFENONE HCL [Concomitant]
     Dosage: DRUG PROPAFENONI HYDROCHLORIDUM
     Route: 048
     Dates: start: 20040324, end: 20040528
  31. SULFAMETHOXAZOLUM [Concomitant]
     Route: 048
     Dates: start: 20040225, end: 20040525
  32. SULFAMETHOXAZOLUM [Concomitant]
     Route: 048
     Dates: start: 20040715, end: 20040824
  33. SULFAMETHOXAZOLUM [Concomitant]
     Route: 048
     Dates: start: 20041206, end: 20041208
  34. VALACYCLOVIR HCL [Concomitant]
     Dosage: DRUG: VALACIKLOVIR
     Route: 048
     Dates: start: 20040311, end: 20040523
  35. VALACYCLOVIR HCL [Concomitant]
     Route: 048
     Dates: start: 20041206

REACTIONS (5)
  - CARDIAC FAILURE [None]
  - DEHYDRATION [None]
  - LARGE INTESTINE PERFORATION [None]
  - PERITONITIS [None]
  - SEPSIS [None]
